FAERS Safety Report 8351420 (Version 5)
Quarter: 2012Q4

REPORT INFORMATION
  Report Type: 
  Country: US (occurrence: US)
  Receive Date: 20120124
  Receipt Date: 20121231
  Transmission Date: 20130627
  Serious: Yes (Hospitalization, Other)
  Sender: FDA-Public Use
  Company Number: US-ELI_LILLY_AND_COMPANY-US201107001786

PATIENT
  Age: 81 Year
  Sex: Female
  Weight: 43 kg

DRUGS (15)
  1. FORTEO [Suspect]
     Indication: OSTEOPOROSIS
     Dosage: 20 ug, qd
     Route: 065
     Dates: start: 201102
  2. FORTEO [Suspect]
     Dosage: 20 ug, qod
     Dates: start: 201208
  3. MULTIVITAMINS, PLAIN [Concomitant]
  4. CALTRATE                           /00944201/ [Concomitant]
  5. CALCIUM [Concomitant]
  6. GLUCOSAMINE [Concomitant]
  7. VITAMIN C [Concomitant]
     Dosage: UNK, qd
  8. FISH OIL [Concomitant]
     Dosage: UNK, qd
  9. TOPROL [Concomitant]
     Dosage: UNK, qd
  10. ASPIRIN [Concomitant]
     Dosage: UNK, qd
  11. LEXAPRO [Concomitant]
     Dosage: UNK, qd
  12. VITAMIN D NOS [Concomitant]
     Dosage: UNK, qd
  13. VITAMIN E [Concomitant]
     Dosage: UNK, qd
  14. LOMEXIN [Concomitant]
  15. LANOXIN [Concomitant]

REACTIONS (4)
  - Femoral neck fracture [Recovered/Resolved with Sequelae]
  - Fall [Recovering/Resolving]
  - Blood calcium increased [Unknown]
  - Drug prescribing error [Unknown]
